FAERS Safety Report 8430658-1 (Version None)
Quarter: 2012Q2

REPORT INFORMATION
  Report Type: 
  Country: None (occurrence: None)
  Receive Date: 20120323
  Receipt Date: 20110413
  Transmission Date: 20120825
  Serious: Yes (Other)
  Sender: FDA-Public Use
  Company Number: 163-21880-11042859

PATIENT
  Age: 55 Year
  Sex: Female

DRUGS (2)
  1. DECADRON [Concomitant]
  2. LENALIDOMIDE [Suspect]
     Indication: MULTIPLE MYELOMA
     Dosage: PO
     Route: 048
     Dates: start: 20081001, end: 20091118

REACTIONS (1)
  - DEEP VEIN THROMBOSIS [None]
